FAERS Safety Report 5396779-5 (Version None)
Quarter: 2007Q3

REPORT INFORMATION
  Report Type: 
  Country: None (occurrence: None)
  Receive Date: 20070725
  Receipt Date: 20070716
  Transmission Date: 20080115
  Serious: Yes (Hospitalization)
  Sender: FDA-Public Use
  Company Number: DE-ROCHE-427452

PATIENT
  Age: 54 Year
  Sex: Female
  Weight: 51 kg

DRUGS (7)
  1. PEG-INTERFERON ALFA 2A (RO 25-8310) [Suspect]
     Dosage: DESCRIBED AS A 'HIGH DOSE INDUCTION'
     Route: 058
     Dates: start: 20041125, end: 20041221
  2. PEG-INTERFERON ALFA 2A (RO 25-8310) [Suspect]
     Route: 058
     Dates: start: 20051228, end: 20061122
  3. PEG-INTERFERON ALFA 2A (RO 25-8310) [Suspect]
     Route: 058
     Dates: start: 20051129, end: 20060404
  4. RIBAVIRIN [Suspect]
     Route: 048
     Dates: start: 20041129, end: 20050907
  5. RIBAVIRIN [Suspect]
     Route: 048
     Dates: start: 20050908, end: 20060414
  6. PENTASA [Concomitant]
  7. MAREEN [Concomitant]

REACTIONS (1)
  - ENTERITIS [None]
